FAERS Safety Report 9296463 (Version 4)
Quarter: 2014Q2

REPORT INFORMATION
  Report Type: Spontaneous
  Country: US (occurrence: US)
  Receive Date: 20130517
  Receipt Date: 20140428
  Transmission Date: 20141212
  Serious: Yes (Other)
  Sender: FDA-Public Use
  Company Number: US-009507513-1305USA009436

PATIENT
  Sex: Male

DRUGS (3)
  1. PROSCAR [Suspect]
     Indication: ANDROGENETIC ALOPECIA
     Dosage: 1.25 MG, UNK
     Route: 048
     Dates: start: 2009, end: 2011
  2. FINASTERIDE [Suspect]
     Indication: ANDROGENETIC ALOPECIA
     Dosage: 5 MG, QD
     Route: 048
     Dates: start: 20091119, end: 20110907
  3. PROPECIA [Suspect]
     Route: 048

REACTIONS (17)
  - Hypoacusis [Unknown]
  - Peyronie^s disease [Not Recovered/Not Resolved]
  - Wrong technique in drug usage process [Unknown]
  - Anxiety [Not Recovered/Not Resolved]
  - Anxiety [Unknown]
  - Drug administration error [Unknown]
  - Headache [Unknown]
  - Back pain [Unknown]
  - Tonsillectomy [Unknown]
  - Intervertebral disc protrusion [Unknown]
  - Drug dependence [Unknown]
  - Drug abuse [Unknown]
  - Insomnia [Unknown]
  - Erectile dysfunction [Not Recovered/Not Resolved]
  - Sexual dysfunction [Not Recovered/Not Resolved]
  - Depression [Not Recovered/Not Resolved]
  - Depression [Unknown]
